FAERS Safety Report 8024258-5 (Version None)
Quarter: 2012Q1

REPORT INFORMATION
  Report Type: 
  Country: None (occurrence: None)
  Receive Date: 20120103
  Receipt Date: 20111223
  Transmission Date: 20120608
  Serious: No
  Sender: FDA-Public Use
  Company Number: 2011-01336

PATIENT
  Age: 62 Year
  Sex: Female
  Weight: 95.2554 kg

DRUGS (6)
  1. ZICAM ULTRA COLD REMEDY RAPIDMELTS [Suspect]
     Indication: NASOPHARYNGITIS
     Dosage: 4 RAPIDMELTS DAILY
     Dates: start: 20111219, end: 20111223
  2. LISINOPRIL [Concomitant]
  3. ELAVIL [Concomitant]
  4. SINGULAIR [Concomitant]
  5. ADVAIR DISKUS 100/50 [Concomitant]
  6. COLESTIPOL HYDROCHLORIDE [Concomitant]

REACTIONS (1)
  - AGEUSIA [None]
